FAERS Safety Report 5804868-3 (Version None)
Quarter: 2008Q3

REPORT INFORMATION
  Report Type: 
  Country: None (occurrence: None)
  Receive Date: 20080709
  Receipt Date: 20080331
  Transmission Date: 20090109
  Serious: Yes (Other)
  Sender: FDA-Public Use
  Company Number: IE-ABBOTT-08P-229-0461133-00

PATIENT
  Age: 22 Year
  Sex: Male

DRUGS (1)
  1. ERYTHROMYCIN BASE [Suspect]
     Indication: TONSILLITIS
     Route: 048
     Dates: start: 20080305, end: 20080307

REACTIONS (2)
  - FACE OEDEMA [None]
  - STOMATITIS [None]
